FAERS Safety Report 13284360 (Version 1)
Quarter: 2017Q1

REPORT INFORMATION
  Report Type: Spontaneous
  Country: US (occurrence: US)
  Receive Date: 20170301
  Receipt Date: 20170301
  Transmission Date: 20170428
  Serious: No
  Sender: FDA-Public Use
  Company Number: US-INSYS THERAPEUTICS, INC-INS201609-000473

PATIENT
  Sex: Male
  Weight: 61.68 kg

DRUGS (6)
  1. SUBSYS [Suspect]
     Active Substance: FENTANYL
     Indication: BACK PAIN
     Route: 060
     Dates: start: 201605
  2. OXYCODONE [Concomitant]
     Active Substance: OXYCODONE
     Indication: PAIN MANAGEMENT
  3. XANAX [Concomitant]
     Active Substance: ALPRAZOLAM
     Indication: ANXIETY
  4. SOMA [Concomitant]
     Active Substance: CARISOPRODOL
     Indication: PAIN MANAGEMENT
  5. DICLOFENAC [Concomitant]
     Active Substance: DICLOFENAC
     Indication: PAIN MANAGEMENT
  6. MORPHINE SULFATE. [Concomitant]
     Active Substance: MORPHINE SULFATE
     Indication: PAIN MANAGEMENT

REACTIONS (3)
  - Product quality issue [Unknown]
  - Discomfort [Not Recovered/Not Resolved]
  - Drug effect incomplete [Unknown]
